FAERS Safety Report 25012413 (Version 1)
Quarter: 2025Q1

REPORT INFORMATION
  Report Type: Spontaneous
  Country: US (occurrence: None)
  Receive Date: 20250226
  Receipt Date: 20250226
  Transmission Date: 20250408
  Serious: Yes (Other)
  Sender: AXSOME THERAPEUTICS, INC.
  Company Number: US-Axsome Therapeutics, Inc.-AXS202501-000019

PATIENT
  Age: 66 Year
  Sex: Male
  Weight: 90.71 kg

DRUGS (5)
  1. AUVELITY [Suspect]
     Active Substance: BUPROPION HYDROCHLORIDE\DEXTROMETHORPHAN HYDROBROMIDE
     Indication: Major depression
     Route: 048
     Dates: start: 20240816, end: 20240822
  2. AUVELITY [Suspect]
     Active Substance: BUPROPION HYDROCHLORIDE\DEXTROMETHORPHAN HYDROBROMIDE
     Route: 048
     Dates: start: 20240823, end: 20250107
  3. DULOXETINE [Concomitant]
     Active Substance: DULOXETINE
     Indication: Major depression
     Route: 065
  4. MODAFINIL [Concomitant]
     Active Substance: MODAFINIL
     Indication: Fatigue
     Route: 065
  5. MODAFINIL [Concomitant]
     Active Substance: MODAFINIL
     Indication: Attention deficit hyperactivity disorder

REACTIONS (4)
  - Generalised tonic-clonic seizure [Recovered/Resolved]
  - Blood pressure systolic increased [Unknown]
  - Depression [Unknown]
  - Off label use [Unknown]

NARRATIVE: CASE EVENT DATE: 20250106
